FAERS Safety Report 4311003-X (Version None)
Quarter: 2004Q1

REPORT INFORMATION
  Report Type: 
  Country: None (occurrence: None)
  Receive Date: 20040302
  Receipt Date: 20040217
  Transmission Date: 20041129
  Serious: Yes (Other)
  Sender: FDA-Public Use
  Company Number: 2004010337

PATIENT
  Age: 60 Year
  Sex: Female
  Weight: 78.4723 kg

DRUGS (5)
  1. LUBRIDERM SKIN RENEWAL ANTI-WRINKLE FACIAL LOTION-FRAGRANCE FREE (OCTY [Suspect]
     Indication: SKIN WRINKLING
     Dosage: SMALL AMOUNT ONCE, TOPICAL
     Route: 061
     Dates: start: 20040212, end: 20040212
  2. COLD CREAM (SODIUM BORATE, BEESWAX WHITE, PARAFFIN, LIQUID, CETYL ESTE [Suspect]
     Indication: SKIN BURNING SENSATION
     Dosage: UNSPECIFIED AMOUNT TO FACE, TOPICAL
     Route: 061
     Dates: start: 20040212
  3. DIGOXIN [Concomitant]
  4. SOTALOL HCL [Concomitant]
  5. ACETYLSALICYLIC ACID SRT [Concomitant]

REACTIONS (7)
  - APPLICATION SITE BURNING [None]
  - APPLICATION SITE ERYTHEMA [None]
  - APPLICATION SITE VESICLES [None]
  - DRY SKIN [None]
  - EYE SWELLING [None]
  - PRURITUS [None]
  - THERMAL BURN [None]
